FAERS Safety Report 21303364 (Version 2)
Quarter: 2022Q3

REPORT INFORMATION
  Report Type: Report from Study
  Country: US (occurrence: None)
  Receive Date: 20220907
  Receipt Date: 20220919
  Transmission Date: 20221027
  Serious: Yes (Other)
  Sender: FDA-Public Use
  Company Number: US-Merck Healthcare KGaA-9348301

PATIENT
  Sex: Female

DRUGS (1)
  1. REBIF [Suspect]
     Active Substance: INTERFERON BETA-1A
     Indication: Multiple sclerosis
     Dosage: REBIJECT II/MANUAL
     Route: 058
     Dates: start: 20220812

REACTIONS (3)
  - Petit mal epilepsy [Unknown]
  - Hepatic enzyme increased [Unknown]
  - Memory impairment [Unknown]
